FAERS Safety Report 15969086 (Version 2)
Quarter: 2019Q1

REPORT INFORMATION
  Report Type: Spontaneous
  Country: US (occurrence: US)
  Receive Date: 20190215
  Receipt Date: 20190315
  Transmission Date: 20190418
  Serious: Yes (Hospitalization)
  Sender: FDA-Public Use
  Company Number: US-BAYER-2019-027995

PATIENT
  Age: 57 Year
  Sex: Male

DRUGS (2)
  1. NEXAVAR [Suspect]
     Active Substance: SORAFENIB
     Indication: DESMOID TUMOUR
     Dosage: 400MG EVERY OTHER DAY
     Route: 048
     Dates: end: 201902
  2. NEXAVAR [Suspect]
     Active Substance: SORAFENIB
     Indication: DESMOID TUMOUR
     Dosage: 400 MG DAILY
     Route: 048
     Dates: start: 20190125

REACTIONS (6)
  - Anal incontinence [None]
  - Frequent bowel movements [None]
  - Rash pruritic [None]
  - Product use in unapproved indication [None]
  - Muscle spasms [None]
  - Off label use [None]

NARRATIVE: CASE EVENT DATE: 20190125
